FAERS Safety Report 6093591-9 (Version None)
Quarter: 2009Q1

REPORT INFORMATION
  Report Type: 
  Country: None (occurrence: None)
  Receive Date: 20090224
  Receipt Date: 20090210
  Transmission Date: 20090719
  Serious: Yes (Hospitalization, Other)
  Sender: FDA-Public Use
  Company Number: ENT 2009-0017

PATIENT
  Age: 64 Year
  Sex: Female

DRUGS (6)
  1. COMTAN [Suspect]
     Indication: DRUG EFFECT DECREASED
     Dosage: SEE IMAGE
     Route: 048
     Dates: start: 20080403, end: 20080430
  2. COMTAN [Suspect]
     Indication: DRUG EFFECT DECREASED
     Dosage: SEE IMAGE
     Route: 048
     Dates: start: 20080501, end: 20080625
  3. COMTAN [Suspect]
     Indication: DRUG EFFECT DECREASED
     Dosage: SEE IMAGE
     Route: 048
     Dates: start: 20080626, end: 20080827
  4. COMTAN [Suspect]
     Indication: DRUG EFFECT DECREASED
     Dosage: SEE IMAGE
     Route: 048
     Dates: start: 20080828
  5. LEVODOPA BENSERAZIDE HYDROCHLO [Concomitant]
  6. SELEGILINE HCL [Concomitant]

REACTIONS (4)
  - ASPARTATE AMINOTRANSFERASE DECREASED [None]
  - DRUG INEFFECTIVE [None]
  - LOWER LIMB FRACTURE [None]
  - ROAD TRAFFIC ACCIDENT [None]
